FAERS Safety Report 7501780-9 (Version None)
Quarter: 2011Q2

REPORT INFORMATION
  Report Type: 
  Country: None (occurrence: None)
  Receive Date: 20110523
  Receipt Date: 20110523
  Transmission Date: 20111010
  Serious: Yes (Other)
  Sender: FDA-Public Use
  Company Number: None

PATIENT
  Age: 53 Year
  Sex: Female
  Weight: 63.05 kg

DRUGS (1)
  1. REMICADE [Suspect]

REACTIONS (8)
  - PAIN [None]
  - OEDEMA PERIPHERAL [None]
  - ASTHMA [None]
  - TUBERCULOSIS [None]
  - MOVEMENT DISORDER [None]
  - RASH [None]
  - INFUSION RELATED REACTION [None]
  - HEADACHE [None]
